FAERS Safety Report 23112577 (Version 2)
Quarter: 2023Q4

REPORT INFORMATION
  Report Type: Report from Study
  Country: CN (occurrence: CN)
  Receive Date: 20231027
  Receipt Date: 20231101
  Transmission Date: 20240110
  Serious: Yes (Hospitalization)
  Sender: FDA-Public Use
  Company Number: CN-BRISTOL-MYERS SQUIBB COMPANY-2023-125337

PATIENT
  Age: 54 Year
  Sex: Male
  Weight: 57 kg

DRUGS (11)
  1. OXYCODONE AND ACETAMINOPHEN [Concomitant]
     Active Substance: ACETAMINOPHEN\OXYCODONE HYDROCHLORIDE
     Indication: Product used for unknown indication
     Route: 048
     Dates: start: 2023
  2. MEGESTROL ACETATE [Concomitant]
     Active Substance: MEGESTROL ACETATE
     Indication: Decreased appetite
     Route: 048
     Dates: start: 20230727
  3. CARBOHYDRATES\ELECTROLYTES NOS [Concomitant]
     Active Substance: CARBOHYDRATES\ELECTROLYTES NOS
     Indication: Product used for unknown indication
     Route: 042
     Dates: start: 20230816, end: 20230817
  4. SODIUM ACETATE RINGER [Concomitant]
     Indication: Product used for unknown indication
     Route: 042
     Dates: start: 20230816, end: 20230817
  5. ACETAMINOPHEN [Concomitant]
     Active Substance: ACETAMINOPHEN
     Indication: Pyrexia
     Dosage: FREQUENCY: ONCE
     Route: 054
     Dates: start: 20230817, end: 20230817
  6. RANITIDINE HYDROCHLORIDE [Concomitant]
     Active Substance: RANITIDINE HYDROCHLORIDE
     Indication: Product used for unknown indication
     Dosage: FREQUENCY: ONCE
     Route: 042
     Dates: start: 20230817, end: 20230817
  7. TIOPRONIN [Concomitant]
     Active Substance: TIOPRONIN
     Indication: Product used for unknown indication
     Dosage: FREQUENCY: ONCE
     Route: 042
     Dates: start: 20230817, end: 20230817
  8. ZOLEDRONIC ACID [Concomitant]
     Active Substance: ZOLEDRONIC ACID
     Indication: Product used for unknown indication
     Dosage: FREQUENCY: ONCE
     Route: 042
     Dates: start: 20230818, end: 20230818
  9. IRON SUCROSE [Concomitant]
     Active Substance: IRON SUCROSE
     Indication: Product used for unknown indication
     Dosage: FREQUENCY: ONCE
     Route: 042
     Dates: start: 20230817, end: 20230817
  10. AMINO ACIDS, SOURCE UNSPECIFIED [Concomitant]
     Active Substance: AMINO ACIDS, SOURCE UNSPECIFIED
     Indication: Product used for unknown indication
     Route: 042
     Dates: start: 20230816, end: 20230816
  11. FAMOTIDINE [Concomitant]
     Active Substance: FAMOTIDINE
     Indication: Product used for unknown indication
     Route: 042
     Dates: start: 20230816, end: 20230816

REACTIONS (1)
  - Blood creatine phosphokinase increased [Not Recovered/Not Resolved]

NARRATIVE: CASE EVENT DATE: 20230824
